FAERS Safety Report 7600681-5 (Version None)
Quarter: 2011Q3

REPORT INFORMATION
  Report Type: 
  Country: None (occurrence: None)
  Receive Date: 20110711
  Receipt Date: 20110701
  Transmission Date: 20111222
  Serious: Yes (Hospitalization, Other)
  Sender: FDA-Public Use
  Company Number: GR-ABBOTT-11P-066-0835788-00

PATIENT
  Age: 62 Year
  Sex: Female

DRUGS (2)
  1. VALPROATE SODIUM [Suspect]
     Indication: RUPTURED CEREBRAL ANEURYSM
  2. VALPROATE SODIUM [Suspect]
     Indication: EMBOLISM

REACTIONS (10)
  - THROMBOCYTOPENIA [None]
  - LEUKOPENIA [None]
  - ANTINUCLEAR ANTIBODY POSITIVE [None]
  - ARTHRALGIA [None]
  - PYREXIA [None]
  - DYSPNOEA [None]
  - LUPUS-LIKE SYNDROME [None]
  - CONVULSION [None]
  - PERICARDITIS [None]
  - HAEMOLYTIC ANAEMIA [None]
